FAERS Safety Report 18721319 (Version 1)
Quarter: 2021Q1

REPORT INFORMATION
  Report Type: Spontaneous
  Country: US (occurrence: US)
  Receive Date: 20210109
  Receipt Date: 20210109
  Transmission Date: 20210419
  Serious: No
  Sender: FDA-Public Use
  Company Number: US-LUPIN PHARMACEUTICALS INC.-2020-11709

PATIENT
  Age: 22 Year
  Sex: Female

DRUGS (5)
  1. MAGNESIUM [Suspect]
     Active Substance: MAGNESIUM
     Indication: BARTTER^S SYNDROME
     Dosage: UNK
     Route: 065
  2. AMILORIDE [Suspect]
     Active Substance: AMILORIDE
     Indication: BARTTER^S SYNDROME
     Dosage: 10 MILLIGRAM, QD
     Route: 065
  3. AMILORIDE [Suspect]
     Active Substance: AMILORIDE
     Dosage: 10 MILLIGRAM, BID
     Route: 065
  4. POTASSIUM CHLORIDE. [Suspect]
     Active Substance: POTASSIUM CHLORIDE
     Dosage: 400 MILLIEQUIVALENT, QD
     Route: 065
  5. POTASSIUM CHLORIDE. [Suspect]
     Active Substance: POTASSIUM CHLORIDE
     Indication: BARTTER^S SYNDROME
     Dosage: 30 MILLIEQUIVALENT, BID
     Route: 065

REACTIONS (2)
  - Normal newborn [Unknown]
  - Maternal exposure during pregnancy [Unknown]
